FAERS Safety Report 9940122 (Version 1)
Quarter: 2014Q1

REPORT INFORMATION
  Report Type: Spontaneous
  Country: US (occurrence: US)
  Receive Date: 20140303
  Receipt Date: 20140303
  Transmission Date: 20141002
  Serious: No
  Sender: FDA-Public Use
  Company Number: US-ABBVIE-13P-163-1036353-00

PATIENT
  Sex: Female

DRUGS (3)
  1. HUMIRA [Suspect]
     Indication: CROHN^S DISEASE
     Dates: start: 201106, end: 201106
  2. HUMIRA [Suspect]
     Dates: start: 201106, end: 201106
  3. HUMIRA [Suspect]
     Dosage: STARTED 2 WEEKS AFTER 80 MILLIGRAM DOSE
     Dates: start: 201106

REACTIONS (3)
  - Device malfunction [Recovered/Resolved]
  - Injection site pain [Unknown]
  - Incorrect dose administered [Unknown]
